FAERS Safety Report 7675397-X (Version None)
Quarter: 2011Q3

REPORT INFORMATION
  Report Type: 
  Country: None (occurrence: None)
  Receive Date: 20110810
  Receipt Date: 20110810
  Transmission Date: 20111222
  Serious: Yes (Other)
  Sender: FDA-Public Use
  Company Number: US-ABBOTT-11P-163-0844465-00

PATIENT
  Sex: Male
  Weight: 124.85 kg

DRUGS (7)
  1. VICODIN [Concomitant]
     Indication: ARTHRALGIA
  2. CELEBREX [Concomitant]
     Indication: ARTHRALGIA
     Route: 048
  3. FOLIC ACID [Concomitant]
     Indication: PRODUCT USED FOR UNKNOWN INDICATION
     Dosage: 1 MG PO DAILY
  4. METHOTREXATE [Concomitant]
     Indication: PRODUCT USED FOR UNKNOWN INDICATION
  5. HUMIRA [Suspect]
     Indication: PSORIATIC ARTHROPATHY
     Route: 058
     Dates: start: 20090801, end: 20110501
  6. HUMIRA [Suspect]
     Route: 058
     Dates: start: 20110501, end: 20110729
  7. PREDNISONE [Concomitant]
     Indication: PRODUCT USED FOR UNKNOWN INDICATION
     Dosage: 5 MG PO DAILY

REACTIONS (7)
  - PSORIATIC ARTHROPATHY [None]
  - SYNOVIAL CYST [None]
  - PSORIASIS [None]
  - JOINT SWELLING [None]
  - DRUG INEFFECTIVE [None]
  - PAIN [None]
  - MENISCUS LESION [None]
